FAERS Safety Report 6822913-3 (Version None)
Quarter: 2010Q3

REPORT INFORMATION
  Report Type: 
  Country: None (occurrence: None)
  Receive Date: 20100702
  Receipt Date: 20100618
  Transmission Date: 20110219
  Serious: Yes (Hospitalization)
  Sender: FDA-Public Use
  Company Number: 2010AC000099

PATIENT
  Age: 70 Year
  Sex: Male

DRUGS (18)
  1. DIGOXIN [Suspect]
     Dosage: 0.250 MG; QD; PO
     Route: 048
     Dates: start: 19840101, end: 20070201
  2. DIGOXIN [Suspect]
     Dosage: 0.125 MG; PO
     Route: 048
     Dates: start: 20070201, end: 20070301
  3. CARDURA [Concomitant]
  4. PRILOSEC [Concomitant]
  5. CARDIZEM [Concomitant]
  6. METFORMIN HCL [Concomitant]
  7. TENORETIC 100 [Concomitant]
  8. DOXAZOSIN [Concomitant]
  9. LEVAQUIN [Concomitant]
  10. COMPAZINE [Concomitant]
  11. LOPRESSOR [Concomitant]
  12. NEXIUM [Concomitant]
  13. IMODIUM [Concomitant]
  14. LISINOPRIL [Concomitant]
  15. VIAGRA [Concomitant]
  16. ZOSYN [Concomitant]
  17. ATENOLOL [Concomitant]
  18. ASPIRIN [Concomitant]

REACTIONS (41)
  - ACQUIRED OESOPHAGEAL WEB [None]
  - ASTHENIA [None]
  - BRUNNER'S GLAND HYPERPLASIA [None]
  - CONDITION AGGRAVATED [None]
  - CONSTIPATION [None]
  - DECREASED APPETITE [None]
  - DEHYDRATION [None]
  - DEPRESSION [None]
  - DIARRHOEA [None]
  - DIZZINESS [None]
  - DRUG LEVEL INCREASED [None]
  - ECONOMIC PROBLEM [None]
  - ELECTROCARDIOGRAM ST SEGMENT ABNORMAL [None]
  - ELECTROCARDIOGRAM T WAVE ABNORMAL [None]
  - EMOTIONAL DISORDER [None]
  - ERECTILE DYSFUNCTION [None]
  - FATIGUE [None]
  - GASTRITIS [None]
  - HIATUS HERNIA [None]
  - HYPOKALAEMIA [None]
  - INCORRECT DOSE ADMINISTERED [None]
  - LETHARGY [None]
  - MENTAL DISORDER [None]
  - MULTIPLE INJURIES [None]
  - MUSCULOSKELETAL STIFFNESS [None]
  - MYOCARDIAL INFARCTION [None]
  - MYOCARDIAL ISCHAEMIA [None]
  - NAUSEA [None]
  - NEPHROLITHIASIS [None]
  - PANCREATITIS ACUTE [None]
  - PARTNER STRESS [None]
  - RENAL FAILURE ACUTE [None]
  - RETCHING [None]
  - SCOLIOSIS [None]
  - SEPSIS [None]
  - SPEECH DISORDER [None]
  - SUPRAVENTRICULAR EXTRASYSTOLES [None]
  - THERAPEUTIC AGENT TOXICITY [None]
  - URINARY TRACT INFECTION [None]
  - VENTRICULAR EXTRASYSTOLES [None]
  - WEIGHT DECREASED [None]
